FAERS Safety Report 25201991 (Version 2)
Quarter: 2025Q2

REPORT INFORMATION
  Report Type: Spontaneous
  Country: CZ (occurrence: CZ)
  Receive Date: 20250416
  Receipt Date: 20250508
  Transmission Date: 20250716
  Serious: Yes (Other)
  Sender: CELLTRION
  Company Number: CZ-ROCHE-10000102842

PATIENT

DRUGS (8)
  1. BEVACIZUMAB [Suspect]
     Active Substance: BEVACIZUMAB
     Indication: Adenocarcinoma
     Route: 065
  2. BEVACIZUMAB [Suspect]
     Active Substance: BEVACIZUMAB
     Indication: Adenocarcinoma
     Route: 065
  3. ERLOTINIB [Suspect]
     Active Substance: ERLOTINIB
     Indication: Adenocarcinoma
     Route: 065
  4. ATEZOLIZUMAB [Suspect]
     Active Substance: ATEZOLIZUMAB
     Indication: Adenocarcinoma
     Route: 065
     Dates: start: 202202
  5. CARBOPLATIN [Suspect]
     Active Substance: CARBOPLATIN
     Indication: Adenocarcinoma
     Route: 065
     Dates: start: 202107, end: 202109
  6. PEMETREXED [Suspect]
     Active Substance: PEMETREXED
     Indication: Adenocarcinoma
     Route: 065
     Dates: start: 202107, end: 202109
  7. DOCETAXEL [Concomitant]
     Active Substance: DOCETAXEL
  8. SOTORASIB [Concomitant]
     Active Substance: SOTORASIB

REACTIONS (5)
  - Metastases to lung [Unknown]
  - Neutropenia [Unknown]
  - Disease progression [Unknown]
  - Diarrhoea [Unknown]
  - Rash [Unknown]
